FAERS Safety Report 8681289 (Version 2)
Quarter: 2013Q4

REPORT INFORMATION
  Report Type: Spontaneous
  Country: US (occurrence: US)
  Receive Date: 20120725
  Receipt Date: 20131031
  Transmission Date: 20140711
  Serious: No
  Sender: FDA-Public Use
  Company Number: US-009507513-2012SP035991

PATIENT
  Age: 61 Year
  Sex: Male

DRUGS (6)
  1. VICTRELIS [Suspect]
     Indication: HEPATITIS C
     Dosage: 800 MG, Q8H
     Route: 048
     Dates: start: 201206
  2. PEGASYS [Suspect]
     Dosage: 180 ?G, QW
     Dates: start: 201205
  3. RIBASPHERE [Suspect]
  4. AMITRIPTYLINE HYDROCHLORIDE [Concomitant]
  5. BUSPIRONE HYDROCHLORIDE [Concomitant]
  6. NADOLOL [Concomitant]

REACTIONS (2)
  - Anaemia [Not Recovered/Not Resolved]
  - Fatigue [Not Recovered/Not Resolved]
